FAERS Safety Report 8079387-7 (Version None)
Quarter: 2012Q1

REPORT INFORMATION
  Report Type: 
  Country: None (occurrence: None)
  Receive Date: 20120128
  Receipt Date: 20110823
  Transmission Date: 20120608
  Serious: No
  Sender: FDA-Public Use
  Company Number: US-ABBOTT-11P-163-0848644-00

PATIENT
  Sex: Female
  Weight: 47.67 kg

DRUGS (4)
  1. MINOCYCLINE HCL [Suspect]
     Indication: FURUNCLE
     Dates: start: 20110815, end: 20110817
  2. CITALOPRAM [Concomitant]
     Indication: ANXIETY
  3. VITAMIN TAB [Concomitant]
     Indication: VITAMIN SUPPLEMENTATION
  4. HUMIRA [Suspect]
     Indication: CROHN'S DISEASE
     Route: 058
     Dates: start: 20110201, end: 20110808

REACTIONS (6)
  - INJECTION SITE PAIN [None]
  - DIZZINESS [None]
  - HEADACHE [None]
  - FURUNCLE [None]
  - HEART RATE INCREASED [None]
  - TREMOR [None]
